FAERS Safety Report 7985751-4 (Version None)
Quarter: 2011Q4

REPORT INFORMATION
  Report Type: 
  Country: None (occurrence: None)
  Receive Date: 20111216
  Receipt Date: 20110615
  Transmission Date: 20120403
  Serious: No
  Sender: FDA-Public Use
  Company Number: US-VIIV HEALTHCARE LIMITED-A0593992A

PATIENT
  Age: 49 Year
  Sex: Male

DRUGS (11)
  1. LOSARTAN POTASSIUM [Concomitant]
  2. LEXIVA [Suspect]
     Indication: HIV INFECTION
     Dosage: 700MG TWICE PER DAY
     Route: 048
     Dates: start: 20060213
  3. CLARITIN [Concomitant]
  4. TRUVADA [Concomitant]
  5. VITAMIN TAB [Concomitant]
  6. SYNTHROID [Concomitant]
  7. EPZICOM [Suspect]
     Indication: HIV INFECTION
     Dosage: 1TAB PER DAY
     Route: 048
     Dates: start: 20110505, end: 20110525
  8. TOPROL-XL [Concomitant]
  9. XANAX [Concomitant]
  10. LEXAPRO [Concomitant]
  11. KLONOPIN [Concomitant]

REACTIONS (13)
  - ABNORMAL DREAMS [None]
  - HYPOTENSION [None]
  - MYALGIA [None]
  - VISION BLURRED [None]
  - HEADACHE [None]
  - JOINT STIFFNESS [None]
  - RASH [None]
  - NAUSEA [None]
  - RASH MACULAR [None]
  - CONFUSIONAL STATE [None]
  - BLOOD PRESSURE INCREASED [None]
  - DIZZINESS [None]
  - ANXIETY [None]
